FAERS Safety Report 14172194 (Version 10)
Quarter: 2024Q2

REPORT INFORMATION
  Report Type: Report from Study
  Country: US (occurrence: US)
  Receive Date: 20171109
  Receipt Date: 20240510
  Transmission Date: 20240716
  Serious: No
  Sender: FDA-Public Use
  Company Number: US-ACADIA PHARMACEUTICALS INC.-ACA-2017-006034

PATIENT
  Age: 73 Year
  Sex: Female

DRUGS (5)
  1. NUPLAZID [Suspect]
     Active Substance: PIMAVANSERIN TARTRATE
     Indication: Parkinson^s disease
     Dosage: 34 MILLIGRAM, QD
     Route: 048
     Dates: start: 20180913
  2. NUPLAZID [Suspect]
     Active Substance: PIMAVANSERIN TARTRATE
     Indication: Parkinson^s disease
     Dosage: 17 MILLIGRAM, QD
     Route: 048
     Dates: start: 201710
  3. NUPLAZID [Suspect]
     Active Substance: PIMAVANSERIN TARTRATE
     Indication: Hallucination
     Dosage: 8.5 MG, QD
     Route: 048
  4. NUPLAZID [Suspect]
     Active Substance: PIMAVANSERIN TARTRATE
     Indication: Delusion
     Dosage: 17 MILLIGRAM, QD
     Route: 048
     Dates: start: 20171114
  5. CARBIDOPA\LEVODOPA [Suspect]
     Active Substance: CARBIDOPA\LEVODOPA
     Indication: Product used for unknown indication
     Dosage: DOSE ADJUSTED

REACTIONS (21)
  - Chills [Not Recovered/Not Resolved]
  - Nonspecific reaction [Not Recovered/Not Resolved]
  - Nonspecific reaction [Unknown]
  - Condition aggravated [Unknown]
  - Pharyngitis streptococcal [Not Recovered/Not Resolved]
  - Insomnia [Recovering/Resolving]
  - Ankle fracture [Not Recovered/Not Resolved]
  - Prescribed underdose [Unknown]
  - Underdose [Unknown]
  - Confusional state [Unknown]
  - Hallucination [Unknown]
  - Confusional state [Unknown]
  - Constipation [Unknown]
  - Hallucination [Unknown]
  - Constipation [Unknown]
  - Hallucination [Unknown]
  - Confusional state [Unknown]
  - Confusional state [Not Recovered/Not Resolved]
  - Hallucination [Not Recovered/Not Resolved]
  - Fall [Unknown]
  - Somnolence [Recovering/Resolving]

NARRATIVE: CASE EVENT DATE: 20171001
